FAERS Safety Report 17374361 (Version 2)
Quarter: 2020Q1

REPORT INFORMATION
  Report Type: Spontaneous
  Country: US (occurrence: US)
  Receive Date: 20200205
  Receipt Date: 20200207
  Transmission Date: 20200409
  Serious: No
  Sender: FDA-Public Use
  Company Number: US-PFIZER INC-2020048006

PATIENT
  Sex: Male

DRUGS (1)
  1. TOBRAMYCIN. [Suspect]
     Active Substance: TOBRAMYCIN
     Dosage: UNK
     Route: 055

REACTIONS (7)
  - Panic reaction [Unknown]
  - Off label use [Unknown]
  - Burning sensation [Unknown]
  - Feeling abnormal [Unknown]
  - Product use issue [Unknown]
  - Eye irritation [Unknown]
  - Accidental exposure to product [Unknown]
